FAERS Safety Report 18376452 (Version 1)
Quarter: 2020Q4

REPORT INFORMATION
  Report Type: Spontaneous
  Country: US (occurrence: US)
  Receive Date: 20201012
  Receipt Date: 20201012
  Transmission Date: 20210114
  Serious: No
  Sender: FDA-Public Use
  Company Number: None

PATIENT
  Age: 72 Year
  Sex: Female

DRUGS (1)
  1. METHOCARBAMOL. [Suspect]
     Active Substance: METHOCARBAMOL
     Dosage: ?          OTHER FREQUENCY:Q8H PRN SPASMS;?
     Route: 048
     Dates: start: 20200915, end: 20201001

REACTIONS (1)
  - Muscle spasms [None]

NARRATIVE: CASE EVENT DATE: 20201001
